FAERS Safety Report 13375008 (Version 1)
Quarter: 2017Q1

REPORT INFORMATION
  Report Type: Spontaneous
  Country: US (occurrence: US)
  Receive Date: 20170327
  Receipt Date: 20170327
  Transmission Date: 20170429
  Serious: No
  Sender: FDA-Public Use
  Company Number: US-PFIZER INC-2017131558

PATIENT
  Age: 81 Year
  Sex: Female

DRUGS (1)
  1. METAXALONE. [Suspect]
     Active Substance: METAXALONE
     Dosage: 400 MG, UNK

REACTIONS (2)
  - Insomnia [Unknown]
  - Drug hypersensitivity [Unknown]
